FAERS Safety Report 9287315 (Version 4)
Quarter: 2013Q3

REPORT INFORMATION
  Report Type: Report from Study
  Country: CA (occurrence: CA)
  Receive Date: 20130514
  Receipt Date: 20130701
  Transmission Date: 20140515
  Serious: Yes (Other)
  Sender: FDA-Public Use
  Company Number: CA-ROCHE-1218166

PATIENT
  Age: 51 Year
  Sex: Male
  Weight: 72 kg

DRUGS (10)
  1. AVASTIN [Suspect]
     Indication: GLIOBLASTOMA
     Route: 042
     Dates: start: 20130422, end: 20130603
  2. TYLENOL #3 (CANADA) [Suspect]
     Indication: PAIN
     Route: 048
     Dates: start: 20130507
  3. DEXAMETHASONE [Concomitant]
     Route: 065
     Dates: start: 20130417
  4. DEXAMETHASONE [Concomitant]
     Route: 065
  5. BENADRYL [Concomitant]
     Route: 048
     Dates: start: 20130422, end: 20130603
  6. SOLU-MEDROL [Concomitant]
     Route: 042
     Dates: start: 20130422, end: 20130603
  7. RANITIDINE [Concomitant]
     Route: 065
  8. STEMETIL [Concomitant]
  9. TYLENOL [Concomitant]
     Route: 065
     Dates: start: 20130507
  10. COLACE [Concomitant]
     Indication: CONSTIPATION
     Route: 065
     Dates: start: 20130507

REACTIONS (16)
  - Tumour rupture [Unknown]
  - Dyspepsia [Recovering/Resolving]
  - Tumour pain [Unknown]
  - Insomnia [Unknown]
  - Constipation [Not Recovered/Not Resolved]
  - Lethargy [Not Recovered/Not Resolved]
  - Fatigue [Not Recovered/Not Resolved]
  - Weight increased [Unknown]
  - Abdominal pain [Not Recovered/Not Resolved]
  - Abdominal distension [Not Recovered/Not Resolved]
  - General physical health deterioration [Not Recovered/Not Resolved]
  - Hemiparesis [Not Recovered/Not Resolved]
  - Asthenia [Not Recovered/Not Resolved]
  - Decreased appetite [Not Recovered/Not Resolved]
  - Disease progression [Unknown]
  - Drug ineffective [Unknown]
